FAERS Safety Report 23499045 (Version 1)
Quarter: 2024Q1

REPORT INFORMATION
  Report Type: Spontaneous
  Country: CN (occurrence: CN)
  Receive Date: 20240208
  Receipt Date: 20240208
  Transmission Date: 20240410
  Serious: Yes (Other)
  Sender: FDA-Public Use
  Company Number: CN-SHANGHAI JUNSHI BIOSCIENCES CO., LTD.-CN2024009252

PATIENT

DRUGS (3)
  1. TORIPALIMAB [Suspect]
     Active Substance: TORIPALIMAB
     Indication: Ovarian cancer
     Dosage: UNK, EVERY 21 DAYS
     Route: 041
  2. GEMCITABINE [Concomitant]
     Active Substance: GEMCITABINE
     Indication: Ovarian cancer
     Dosage: UNK, Q3WEEKS
  3. RALTITREXED [Concomitant]
     Active Substance: RALTITREXED
     Indication: Ovarian cancer
     Dosage: UNK, EVERY 21 DAYS

REACTIONS (2)
  - Immune-mediated hepatic disorder [Recovered/Resolved]
  - Off label use [Unknown]
